FAERS Safety Report 24745073 (Version 3)
Quarter: 2025Q4

REPORT INFORMATION
  Report Type: Report from Study
  Country: CN (occurrence: CN)
  Receive Date: 20241217
  Receipt Date: 20251124
  Transmission Date: 20260117
  Serious: Yes (Hospitalization)
  Sender: EISAI
  Company Number: CN-Eisai-EC-2024-180699

PATIENT
  Age: 62 Year
  Sex: Female
  Weight: 62 kg

DRUGS (10)
  1. ERIBULIN [Suspect]
     Active Substance: ERIBULIN
     Indication: Breast cancer
     Route: 042
     Dates: start: 20241101, end: 20241129
  2. ERIBULIN [Suspect]
     Active Substance: ERIBULIN
     Route: 042
     Dates: start: 20241220, end: 20250117
  3. CAPECITABINE [Suspect]
     Active Substance: CAPECITABINE
     Indication: Breast cancer
     Route: 048
     Dates: start: 20241101, end: 20241114
  4. CAPECITABINE [Suspect]
     Active Substance: CAPECITABINE
     Dosage: 1G IN THE MORNING AND 1.5G IN THE EVENING (2.5 GM)
     Route: 048
     Dates: start: 20241122, end: 20241205
  5. CAPECITABINE [Suspect]
     Active Substance: CAPECITABINE
     Dosage: 1G IN THE MORNING AND 1.5G IN THE EVENING (2.5 GM)
     Route: 048
     Dates: start: 20241220, end: 20250123
  6. NIFEDIPINE [Concomitant]
     Active Substance: NIFEDIPINE
     Route: 048
     Dates: start: 2020
  7. CALCITRIOL [Concomitant]
     Active Substance: CALCITRIOL
     Route: 048
     Dates: start: 2019
  8. IRON POLYSACCHARIDE [Concomitant]
     Route: 048
     Dates: start: 20241028
  9. DENOSUMAB [Concomitant]
     Active Substance: DENOSUMAB
     Route: 058
  10. METOCLOPRAMIDE [Concomitant]
     Active Substance: METOCLOPRAMIDE
     Route: 048
     Dates: start: 20241115

REACTIONS (1)
  - Venous thrombosis [Recovering/Resolving]

NARRATIVE: CASE EVENT DATE: 20241210
